FAERS Safety Report 16595949 (Version 1)
Quarter: 2019Q3

REPORT INFORMATION
  Report Type: Spontaneous
  Country: US (occurrence: US)
  Receive Date: 20190605
  Receipt Date: 20190605
  Transmission Date: 20191004
  Serious: No
  Sender: FDA-Public Use
  Company Number: None

PATIENT
  Age: 56 Year
  Sex: Female

DRUGS (1)
  1. ENOXAPARIN INJ 80MG/0.8ML [Suspect]
     Active Substance: ENOXAPARIN
     Dates: start: 20190407, end: 20190409

REACTIONS (1)
  - Abscess [None]

NARRATIVE: CASE EVENT DATE: 20190407
